FAERS Safety Report 5504711-6 (Version None)
Quarter: 2007Q4

REPORT INFORMATION
  Report Type: 
  Country: None (occurrence: None)
  Receive Date: 20071031
  Receipt Date: 20071019
  Transmission Date: 20080405
  Serious: Yes (Life-Threatening, Hospitalization)
  Sender: FDA-Public Use
  Company Number: 2007-02267

PATIENT
  Age: 53 Year
  Sex: Male
  Weight: 100 kg

DRUGS (6)
  1. VELCADE [Suspect]
     Indication: PLASMACYTOMA
     Dosage: 2.60 MG, INTRAVENOUS
     Route: 042
     Dates: start: 20070702, end: 20070702
  2. CYCLOPHOSPHAMIDE [Suspect]
     Indication: PLASMACYTOMA
     Dosage: 1800.00 MG, INTRAVENOUS
     Route: 042
     Dates: start: 20070702, end: 20070702
  3. DEXAMETHASONE [Suspect]
     Indication: PLASMACYTOMA
     Dosage: 40.00 MG, ORAL
     Route: 048
     Dates: start: 20070602
  4. DIPYRONE TAB [Concomitant]
  5. BUPRENORPHINE HYDROCHLORIDE [Concomitant]
  6. PANTOPRAZOLE SODIUM [Concomitant]

REACTIONS (22)
  - ACUTE RESPIRATORY DISTRESS SYNDROME [None]
  - ACUTE RESPIRATORY FAILURE [None]
  - CARDIAC FAILURE [None]
  - CONTINUOUS HAEMODIAFILTRATION [None]
  - DISSEMINATED INTRAVASCULAR COAGULATION [None]
  - ERYTHEMA [None]
  - HAEMODIALYSIS [None]
  - HEPATIC FAILURE [None]
  - HYPOTENSION [None]
  - LEFT VENTRICULAR FAILURE [None]
  - MASTOIDITIS [None]
  - MULTI-ORGAN FAILURE [None]
  - PULMONARY EMBOLISM [None]
  - PUPILS UNEQUAL [None]
  - PURULENT DISCHARGE [None]
  - RENAL FAILURE ACUTE [None]
  - SEPTIC SHOCK [None]
  - SINUSITIS [None]
  - SKIN DISORDER [None]
  - STAPHYLOCOCCAL INFECTION [None]
  - TACHYARRHYTHMIA [None]
  - THROMBOCYTOPENIA [None]
